FAERS Safety Report 23165545 (Version 1)
Quarter: 2023Q4

REPORT INFORMATION
  Report Type: Report from Study
  Country: BR (occurrence: BR)
  Receive Date: 20231109
  Receipt Date: 20231109
  Transmission Date: 20240110
  Serious: Yes (Other)
  Sender: FDA-Public Use
  Company Number: BR-002147023-NVSC2023BR239191

PATIENT
  Sex: Male

DRUGS (1)
  1. EXFORGE HCT [Suspect]
     Active Substance: AMLODIPINE BESYLATE\HYDROCHLOROTHIAZIDE\VALSARTAN
     Indication: Hypertension
     Dosage: UNK (STRENGTH: 320/25/10)
     Route: 065

REACTIONS (4)
  - Throat cancer [Unknown]
  - Blood pressure decreased [Unknown]
  - Speech disorder [Unknown]
  - Blood pressure increased [Unknown]
